FAERS Safety Report 23427172 (Version 2)
Quarter: 2024Q1

REPORT INFORMATION
  Report Type: Spontaneous
  Country: US (occurrence: US)
  Receive Date: 20240122
  Receipt Date: 20240202
  Transmission Date: 20240409
  Serious: Yes (Other)
  Sender: FDA-Public Use
  Company Number: US-TAIHOP-2024-000294

PATIENT
  Age: 59 Year
  Sex: Female

DRUGS (3)
  1. LYTGOBI [Suspect]
     Active Substance: FUTIBATINIB
     Indication: Breast cancer metastatic
     Route: 048
     Dates: start: 202307
  2. LYTGOBI [Suspect]
     Active Substance: FUTIBATINIB
     Route: 048
  3. ELIQUIS [Concomitant]
     Active Substance: APIXABAN
     Indication: Thrombosis

REACTIONS (2)
  - Subretinal fluid [Unknown]
  - Off label use [Unknown]
